FAERS Safety Report 16049338 (Version 1)
Quarter: 2019Q1

REPORT INFORMATION
  Report Type: Spontaneous
  Country: US (occurrence: US)
  Receive Date: 20190307
  Receipt Date: 20190307
  Transmission Date: 20190418
  Serious: Yes (Hospitalization)
  Sender: FDA-Public Use
  Company Number: US-VERTEX PHARMACEUTICALS-2019-001134

PATIENT
  Age: 25 Year
  Sex: Male

DRUGS (4)
  1. SYMDEKO [Suspect]
     Active Substance: IVACAFTOR\TEZACAFTOR
     Dosage: UNK, BID
     Route: 048
     Dates: start: 20190208
  2. SYMDEKO [Suspect]
     Active Substance: IVACAFTOR\TEZACAFTOR
     Indication: CYSTIC FIBROSIS
     Dosage: 100MG TEZACAFTOR/150MG IVACAFTOR; 150MG IVACAFTOR (FREQUENCY UNKNOWN)
     Route: 048
     Dates: start: 20181015, end: 201901
  3. PULMOZYME [Concomitant]
     Active Substance: DORNASE ALFA
  4. TOBRAMYCIN. [Concomitant]
     Active Substance: TOBRAMYCIN

REACTIONS (3)
  - Product dose omission [Recovered/Resolved]
  - Hospitalisation [Not Recovered/Not Resolved]
  - Insurance issue [Recovered/Resolved]

NARRATIVE: CASE EVENT DATE: 201901
